FAERS Safety Report 7209176-4 (Version None)
Quarter: 2011Q1

REPORT INFORMATION
  Report Type: 
  Country: None (occurrence: None)
  Receive Date: 20110104
  Receipt Date: 20101228
  Transmission Date: 20110831
  Serious: Yes (Hospitalization)
  Sender: FDA-Public Use
  Company Number: US-US-EMD SERONO, INC.-7029825

PATIENT
  Sex: Male

DRUGS (3)
  1. REBIF [Suspect]
     Route: 058
     Dates: start: 20101123, end: 20100101
  2. REBIF [Suspect]
     Indication: PRODUCT USED FOR UNKNOWN INDICATION
     Dates: start: 20020601, end: 20080201
  3. REBIF [Suspect]
     Route: 058
     Dates: start: 20100101

REACTIONS (1)
  - CONVULSION [None]
